FAERS Safety Report 5443445-3 (Version None)
Quarter: 2007Q3

REPORT INFORMATION
  Report Type: 
  Country: None (occurrence: None)
  Receive Date: 20070905
  Receipt Date: 20070828
  Transmission Date: 20080115
  Serious: Yes (Other)
  Sender: FDA-Public Use
  Company Number: GB-ASTRAZENECA-2007GB01764

PATIENT
  Age: 46 Year
  Sex: Female

DRUGS (4)
  1. QUETIAPINE FUMARATE [Suspect]
     Route: 048
  2. EFFEXOR [Suspect]
  3. RISPERIDONE [Suspect]
     Indication: MAJOR DEPRESSION
     Route: 048
     Dates: start: 20070308
  4. LITHIUM CARBONATE [Concomitant]

REACTIONS (2)
  - BREAST PAIN [None]
  - HYPERPROLACTINAEMIA [None]
